FAERS Safety Report 15190100 (Version 1)
Quarter: 2018Q3

REPORT INFORMATION
  Report Type: Spontaneous
  Country: GB (occurrence: GB)
  Receive Date: 20180724
  Receipt Date: 20180724
  Transmission Date: 20181010
  Serious: Yes (Other)
  Sender: FDA-Public Use
  Company Number: PHHY2009GB15136

PATIENT

DRUGS (3)
  1. GRANOCYTE [Suspect]
     Active Substance: LENOGRASTIM
     Indication: CHRONIC MYELOID LEUKAEMIA
     Dosage: 263 UG, ON DAYS 24, 26 AND 28 OF EACH CYCLE
     Route: 065
  2. GLIVEC [Suspect]
     Active Substance: IMATINIB MESYLATE
     Indication: CHRONIC MYELOID LEUKAEMIA
     Dosage: 400 MG, UNK
     Route: 065
  3. GLIVEC [Suspect]
     Active Substance: IMATINIB MESYLATE
     Dosage: 400 MG, QD
     Route: 065

REACTIONS (3)
  - Off label use [Unknown]
  - Chronic myeloid leukaemia [Unknown]
  - Malignant neoplasm progression [Unknown]
